FAERS Safety Report 18118433 (Version 1)
Quarter: 2020Q3

REPORT INFORMATION
  Report Type: Spontaneous
  Country: CN (occurrence: CN)
  Receive Date: 20200806
  Receipt Date: 20200806
  Transmission Date: 20201103
  Serious: Yes (Other)
  Sender: FDA-Public Use
  Company Number: CN-ROCHE-2654350

PATIENT
  Age: 63 Year
  Sex: Female

DRUGS (7)
  1. PACLITAXEL. [Concomitant]
     Active Substance: PACLITAXEL
     Indication: INTRADUCTAL PROLIFERATIVE BREAST LESION
     Dosage: DAY 1
  2. DOXORUBICIN [Concomitant]
     Active Substance: DOXORUBICIN
     Indication: INTRADUCTAL PROLIFERATIVE BREAST LESION
     Dosage: DAY 1
  3. LETROZOLE. [Concomitant]
     Active Substance: LETROZOLE
     Indication: INTRADUCTAL PROLIFERATIVE BREAST LESION
     Route: 048
  4. HERCEPTIN [Suspect]
     Active Substance: TRASTUZUMAB
     Indication: INTRADUCTAL PROLIFERATIVE BREAST LESION
     Dosage: FOR 8 CYCLES
     Route: 065
  5. PYROTINIB [Concomitant]
     Active Substance: PYROTINIB
     Indication: INTRADUCTAL PROLIFERATIVE BREAST LESION
  6. CYCLOPHOSPHAMIDE. [Concomitant]
     Active Substance: CYCLOPHOSPHAMIDE
     Indication: INTRADUCTAL PROLIFERATIVE BREAST LESION
     Dosage: DAY 1
  7. ZOLEDRONIC ACID [Concomitant]
     Active Substance: ZOLEDRONIC ACID

REACTIONS (4)
  - Pneumonitis [Unknown]
  - Hepatic steatosis [Unknown]
  - Liver injury [Unknown]
  - Pulpitis dental [Unknown]

NARRATIVE: CASE EVENT DATE: 20191122
